FAERS Safety Report 10146810 (Version 1)
Quarter: 2014Q2

REPORT INFORMATION
  Report Type: Spontaneous
  Country: US (occurrence: None)
  Receive Date: 20140430
  Receipt Date: 20140430
  Transmission Date: 20141212
  Serious: Yes (Hospitalization)
  Sender: FDA-Public Use
  Company Number: None

PATIENT
  Age: 83 Year
  Sex: Male

DRUGS (7)
  1. BICALUTAMIDE [Suspect]
     Indication: PROSTATE CANCER
     Route: 048
     Dates: end: 20120317
  2. CHOLECALIFEROL [Concomitant]
  3. FOLIC ACID [Concomitant]
  4. OXYBUTYNIN [Concomitant]
  5. PHENYTOIN [Concomitant]
  6. SIMVASTATIN [Concomitant]
  7. LEUPROLIDE [Concomitant]

REACTIONS (7)
  - Haematuria [None]
  - Abdominal pain [None]
  - Acute myocardial infarction [None]
  - Hypotension [None]
  - Haemoglobin decreased [None]
  - Atrioventricular block complete [None]
  - Thrombosis in device [None]
